FAERS Safety Report 4878689-2 (Version None)
Quarter: 2006Q1

REPORT INFORMATION
  Report Type: 
  Country: None (occurrence: None)
  Receive Date: 20060112
  Receipt Date: 20060106
  Transmission Date: 20060701
  Serious: Yes (Other)
  Sender: FDA-Public Use
  Company Number: US-JNJFOC-20060101485

PATIENT
  Age: 70 Year
  Sex: Female

DRUGS (1)
  1. LEVAQUIN [Suspect]
     Route: 048
     Dates: start: 20060104, end: 20060106

REACTIONS (1)
  - GLAUCOMA [None]
